FAERS Safety Report 6665582-8 (Version None)
Quarter: 2010Q1

REPORT INFORMATION
  Report Type: 
  Country: None (occurrence: None)
  Receive Date: 20100330
  Receipt Date: 20100322
  Transmission Date: 20100710
  Serious: Yes (Life-Threatening, Hospitalization, Other)
  Sender: FDA-Public Use
  Company Number: 2008US003167

PATIENT
  Age: 48 Year
  Sex: Male
  Weight: 88 kg

DRUGS (2)
  1. AMEVIVE [Suspect]
     Indication: PSORIASIS
     Dosage: 7.5 MG, WEEKLY, IV NOS, 15 MG, WEEKLY, INTRAMUSCULAR
     Route: 042
     Dates: start: 20030731, end: 20031024
  2. AMEVIVE [Suspect]
     Indication: PSORIASIS
     Dosage: 7.5 MG, WEEKLY, IV NOS, 15 MG, WEEKLY, INTRAMUSCULAR
     Route: 042
     Dates: start: 20040313, end: 20040626

REACTIONS (2)
  - CORONARY ARTERY DISEASE [None]
  - MYOCARDIAL INFARCTION [None]
